FAERS Safety Report 5771140-X (Version None)
Quarter: 2008Q2

REPORT INFORMATION
  Report Type: 
  Country: None (occurrence: None)
  Receive Date: 20080613
  Receipt Date: 20061211
  Transmission Date: 20081010
  Serious: No
  Sender: FDA-Public Use
  Company Number: US-BAYER-200616654BWH

PATIENT
  Age: 55 Year
  Sex: Female

DRUGS (1)
  1. NIMOTOP [Suspect]
     Indication: SUBARACHNOID HAEMORRHAGE
     Dosage: AS USED: 60 MG  UNIT DOSE: 30 MG
     Route: 042
     Dates: start: 20061101

REACTIONS (2)
  - BRADYCARDIA [None]
  - CARDIO-RESPIRATORY ARREST [None]
